FAERS Safety Report 4588482-6 (Version None)
Quarter: 2005Q1

REPORT INFORMATION
  Report Type: 
  Country: None (occurrence: None)
  Receive Date: 20050222
  Receipt Date: 20050210
  Transmission Date: 20050727
  Serious: Yes (Hospitalization)
  Sender: FDA-Public Use
  Company Number: US-AMGEN-US113121

PATIENT
  Sex: Female

DRUGS (8)
  1. ARANESP [Suspect]
     Indication: ANAEMIA
     Dates: start: 20041101
  2. FOLIC ACID [Concomitant]
  3. VITAMIN B-12 [Concomitant]
  4. ALLOPURINOL [Concomitant]
  5. AMARYL [Concomitant]
  6. VERAPAMIL HYDROCHLORIDE [Concomitant]
  7. LISINOPRIL [Concomitant]
  8. COREG [Concomitant]

REACTIONS (2)
  - CONFUSIONAL STATE [None]
  - PNEUMONIA [None]
